FAERS Safety Report 10100745 (Version 2)
Quarter: 2014Q2

REPORT INFORMATION
  Report Type: Spontaneous
  Country: FR (occurrence: FR)
  Receive Date: 20140423
  Receipt Date: 20140507
  Transmission Date: 20141212
  Serious: Yes (Hospitalization)
  Sender: FDA-Public Use
  Company Number: PHHY2014FR047812

PATIENT
  Age: 64 Year
  Sex: Female

DRUGS (6)
  1. TEGRETOL [Suspect]
     Dosage: 400 MG, BID
     Route: 048
  2. AZITHROMYCIN [Suspect]
     Dosage: 250 MG, QOD
     Route: 048
     Dates: start: 20130218
  3. SOLIAN [Suspect]
     Dosage: 400 MG, BID
  4. HALDOL DECANOAS [Suspect]
     Dosage: 150 MG, (1 INJECTION OF 150 MG EVERY 3 WEEKS)
     Route: 030
  5. VALIUM [Suspect]
     Dosage: 1 DF, TID
     Route: 048
  6. IMOVANE [Suspect]
     Dosage: 7.5 MG, QD

REACTIONS (3)
  - Peripheral sensorimotor neuropathy [Not Recovered/Not Resolved]
  - Monoparesis [Not Recovered/Not Resolved]
  - Dysarthria [Not Recovered/Not Resolved]
